FAERS Safety Report 6112415-4 (Version None)
Quarter: 2009Q1

REPORT INFORMATION
  Report Type: 
  Country: None (occurrence: None)
  Receive Date: 20090312
  Receipt Date: 20090305
  Transmission Date: 20090719
  Serious: Yes (Life-Threatening, Hospitalization)
  Sender: FDA-Public Use
  Company Number: US-KINGPHARMUSA00001-K200900243

PATIENT
  Age: 67 Year
  Sex: Female

DRUGS (6)
  1. ALTACE [Suspect]
     Indication: HYPERTENSION
     Dosage: 5 MG, QD
     Route: 048
     Dates: end: 20081121
  2. METFORMIN HCL [Suspect]
     Indication: DIABETES MELLITUS
     Dosage: 850 MG, TID
     Route: 048
     Dates: start: 19950101, end: 20081121
  3. CALCIUM SANDOZ                     /00751501/ [Concomitant]
     Indication: SPINAL FRACTURE
     Dosage: UNK
     Route: 048
     Dates: start: 20081114, end: 20081121
  4. CALSYNAR                           /00371903/ [Concomitant]
     Indication: SPINAL FRACTURE
     Dosage: 200 IU, QD
     Dates: start: 20081114, end: 20081121
  5. GLIBENCLAMIDE [Concomitant]
     Indication: DIABETES MELLITUS
     Dosage: UNK
     Route: 048
     Dates: start: 19950101
  6. ZALDIAR                            /01573601/ [Concomitant]
     Dosage: UNK
     Route: 048
     Dates: start: 20081114, end: 20081121

REACTIONS (4)
  - DRUG INTERACTION [None]
  - HYPERKALAEMIA [None]
  - LACTIC ACIDOSIS [None]
  - RENAL FAILURE ACUTE [None]
